FAERS Safety Report 21584016 (Version 3)
Quarter: 2023Q1

REPORT INFORMATION
  Report Type: Report from Study
  Country: US (occurrence: US)
  Receive Date: 20221111
  Receipt Date: 20230104
  Transmission Date: 20230418
  Serious: No
  Sender: FDA-Public Use
  Company Number: US-002147023-NVSC2022US251582

PATIENT
  Sex: Male

DRUGS (1)
  1. COSENTYX [Suspect]
     Active Substance: SECUKINUMAB
     Indication: Psoriasis
     Dosage: 300 MG, QMO
     Route: 061

REACTIONS (4)
  - Skin exfoliation [Recovering/Resolving]
  - Arthralgia [Recovering/Resolving]
  - Product availability issue [Unknown]
  - Incorrect route of product administration [Unknown]
